FAERS Safety Report 6997998-4 (Version None)
Quarter: 2010Q3

REPORT INFORMATION
  Report Type: 
  Country: None (occurrence: None)
  Receive Date: 20100920
  Receipt Date: 20070516
  Transmission Date: 20110219
  Serious: No
  Sender: FDA-Public Use
  Company Number: US-ASTRAZENECA-2006UW08337

PATIENT
  Age: 61 Year
  Sex: Male
  Weight: 90.5 kg

DRUGS (25)
  1. SEROQUEL [Suspect]
     Indication: BIPOLAR DISORDER
     Dosage: 300-600 MG
     Route: 048
     Dates: start: 20010820, end: 20030211
  2. SEROQUEL [Suspect]
     Indication: DEPRESSION
     Dosage: 300-600 MG
     Route: 048
     Dates: start: 20010820, end: 20030211
  3. SEROQUEL [Suspect]
     Indication: MOOD ALTERED
     Dosage: 300-600 MG
     Route: 048
     Dates: start: 20010820, end: 20030211
  4. SEROQUEL [Suspect]
     Indication: INSOMNIA
     Dosage: 300-600 MG
     Route: 048
     Dates: start: 20010820, end: 20030211
  5. SEROQUEL [Suspect]
     Route: 048
     Dates: start: 20020101, end: 20030101
  6. SEROQUEL [Suspect]
     Route: 048
     Dates: start: 20020101, end: 20030101
  7. SEROQUEL [Suspect]
     Route: 048
     Dates: start: 20020101, end: 20030101
  8. SEROQUEL [Suspect]
     Route: 048
     Dates: start: 20020101, end: 20030101
  9. SEROQUEL [Suspect]
     Dosage: 25-100 MG
     Route: 048
     Dates: start: 20030424, end: 20030701
  10. SEROQUEL [Suspect]
     Dosage: 25-100 MG
     Route: 048
     Dates: start: 20030424, end: 20030701
  11. SEROQUEL [Suspect]
     Dosage: 25-100 MG
     Route: 048
     Dates: start: 20030424, end: 20030701
  12. SEROQUEL [Suspect]
     Dosage: 25-100 MG
     Route: 048
     Dates: start: 20030424, end: 20030701
  13. ABILIFY [Concomitant]
     Route: 048
     Dates: start: 20050101
  14. RISPERDAL [Concomitant]
     Dates: start: 20020101, end: 20030101
  15. ZYPREXA [Concomitant]
     Dates: start: 20010101, end: 20020101
  16. LORATADINE [Concomitant]
     Route: 048
     Dates: start: 20030312
  17. GABAPENTIN [Concomitant]
     Indication: PAIN
     Dosage: 300 MG -1500 MG
     Route: 048
     Dates: start: 20011217
  18. GABAPENTIN [Concomitant]
     Indication: ANXIETY
     Dosage: 300 MG -1500 MG
     Route: 048
     Dates: start: 20011217
  19. GABAPENTIN [Concomitant]
     Indication: MOOD ALTERED
     Dosage: 300 MG -1500 MG
     Route: 048
     Dates: start: 20011217
  20. ATENOLOL [Concomitant]
     Route: 048
     Dates: start: 20030312
  21. KLONOPIN [Concomitant]
     Dates: start: 20010124
  22. DEPAKOTE [Concomitant]
     Dates: start: 20001218
  23. EFFEXOR [Concomitant]
     Dates: start: 19990423
  24. AMBIEN [Concomitant]
     Dates: start: 20001218
  25. LEVOTHYROXINE [Concomitant]
     Route: 048
     Dates: start: 20030312

REACTIONS (5)
  - CATARACT [None]
  - DIABETES MELLITUS [None]
  - DIABETES MELLITUS INADEQUATE CONTROL [None]
  - TYPE 2 DIABETES MELLITUS [None]
  - VISUAL ACUITY REDUCED [None]
